FAERS Safety Report 20084540 (Version 1)
Quarter: 2021Q4

REPORT INFORMATION
  Report Type: Spontaneous
  Country: US (occurrence: None)
  Receive Date: 20211118
  Receipt Date: 20211118
  Transmission Date: 20220303
  Serious: Yes (Other)
  Sender: FDA-Public Use
  Company Number: US-Hikma Pharmaceuticals USA Inc.-US-H14001-21-04912

PATIENT
  Age: 13 Year
  Sex: Male
  Weight: 49.89 kg

DRUGS (1)
  1. FLUTICASONE [Suspect]
     Active Substance: FLUTICASONE
     Indication: Seasonal allergy
     Dosage: IN EACH NOSTRIL
     Route: 045
     Dates: start: 20211102, end: 20211102

REACTIONS (1)
  - Suspected transmission of an infectious agent via product [Recovered/Resolved]

NARRATIVE: CASE EVENT DATE: 20211102
